FAERS Safety Report 4460493-0 (Version None)
Quarter: 2004Q3

REPORT INFORMATION
  Report Type: 
  Country: None (occurrence: None)
  Receive Date: 20040923
  Receipt Date: 20040923
  Transmission Date: 20050211
  Serious: No
  Sender: FDA-Public Use
  Company Number: None

PATIENT
  Age: 37 Year
  Sex: Female
  Weight: 60.3284 kg

DRUGS (1)
  1. LEVAQUIN [Suspect]
     Indication: BRONCHITIS
     Dosage: 1 TABLET   DAILY   ORAL
     Route: 048
     Dates: start: 20041009, end: 20041013

REACTIONS (2)
  - ARTHRALGIA [None]
  - TENDONITIS [None]
